FAERS Safety Report 9287731 (Version 3)
Quarter: 2013Q4

REPORT INFORMATION
  Report Type: Spontaneous
  Country: US (occurrence: US)
  Receive Date: 20130514
  Receipt Date: 20131127
  Transmission Date: 20140711
  Serious: No
  Sender: FDA-Public Use
  Company Number: US-ASTRAZENECA-2013SE29197

PATIENT
  Age: 70 Year
  Sex: Male
  Weight: 98.4 kg

DRUGS (10)
  1. NEXIUM [Suspect]
     Indication: GASTROOESOPHAGEAL REFLUX DISEASE
     Route: 048
     Dates: start: 201303
  2. NEXIUM [Suspect]
     Indication: HELICOBACTER INFECTION
     Route: 048
     Dates: start: 201303
  3. NEXIUM [Suspect]
     Indication: GASTROOESOPHAGEAL REFLUX DISEASE
     Route: 048
  4. NEXIUM [Suspect]
     Indication: HELICOBACTER INFECTION
     Route: 048
  5. NEXIUM [Suspect]
     Indication: GASTROOESOPHAGEAL REFLUX DISEASE
     Route: 048
     Dates: start: 201309
  6. NEXIUM [Suspect]
     Indication: HELICOBACTER INFECTION
     Route: 048
     Dates: start: 201309
  7. NEXIUM [Suspect]
     Indication: GASTROOESOPHAGEAL REFLUX DISEASE
     Dosage: EVERY 2-3 DAYS
     Route: 048
  8. NEXIUM [Suspect]
     Indication: HELICOBACTER INFECTION
     Dosage: EVERY 2-3 DAYS
     Route: 048
  9. LUMIGAN [Concomitant]
     Indication: GLAUCOMA
  10. COSOPT [Concomitant]
     Indication: GLAUCOMA

REACTIONS (7)
  - Intraocular pressure increased [Unknown]
  - Urine output decreased [Unknown]
  - Constipation [Not Recovered/Not Resolved]
  - Vision blurred [Unknown]
  - Dry mouth [Not Recovered/Not Resolved]
  - Gastrooesophageal reflux disease [Unknown]
  - Intentional drug misuse [Unknown]
